FAERS Safety Report 14215739 (Version 1)
Quarter: 2017Q4

REPORT INFORMATION
  Report Type: Spontaneous
  Country: US (occurrence: US)
  Receive Date: 20171122
  Receipt Date: 20171122
  Transmission Date: 20180321
  Serious: No
  Sender: FDA-Public Use
  Company Number: US-ASTRAZENECA-2017SF15362

PATIENT
  Sex: Female

DRUGS (1)
  1. SYMBICORT [Suspect]
     Active Substance: BUDESONIDE\FORMOTEROL FUMARATE DIHYDRATE
     Dosage: 160/4.5 MCG 60 INHALATIONS HUD
     Route: 055

REACTIONS (4)
  - Hypertension [Unknown]
  - Product quality issue [Unknown]
  - Off label use [Unknown]
  - Blood cholesterol abnormal [Unknown]
